FAERS Safety Report 7029501-7 (Version None)
Quarter: 2010Q4

REPORT INFORMATION
  Report Type: 
  Country: None (occurrence: None)
  Receive Date: 20101005
  Receipt Date: 20100929
  Transmission Date: 20110411
  Serious: Yes (Hospitalization, Other)
  Sender: FDA-Public Use
  Company Number: US-ELI_LILLY_AND_COMPANY-US201009008145

PATIENT
  Age: 78 Year
  Sex: Male

DRUGS (5)
  1. GEMZAR [Suspect]
     Indication: PANCREATIC CARCINOMA
     Dosage: UNK, OTHER
     Dates: start: 20100510
  2. GLIPIZIDE [Concomitant]
     Dosage: 2.5 MG, EACH EVENING
  3. METOPROLOL [Concomitant]
     Dosage: 5 MG, 2/D
  4. ASPIRIN [Concomitant]
     Dosage: 81 MG, UNK
  5. PLAVIX [Concomitant]
     Dosage: 75 MG, UNK

REACTIONS (9)
  - ASTHENIA [None]
  - CHILLS [None]
  - CORONARY ARTERIAL STENT INSERTION [None]
  - DYSPNOEA [None]
  - FATIGUE [None]
  - HYPOVENTILATION [None]
  - NECK PAIN [None]
  - PYREXIA [None]
  - RASH [None]
